FAERS Safety Report 18385658 (Version 1)
Quarter: 2020Q4

REPORT INFORMATION
  Report Type: Spontaneous
  Country: JP (occurrence: JP)
  Receive Date: 20201015
  Receipt Date: 20201015
  Transmission Date: 20210114
  Serious: Yes (Hospitalization, Other)
  Sender: FDA-Public Use
  Company Number: JP-ASTELLAS-2020JP015232

PATIENT
  Age: 67 Year
  Sex: Female

DRUGS (2)
  1. GRACEPTOR [Suspect]
     Active Substance: TACROLIMUS
     Indication: LIVER TRANSPLANT
     Dosage: UNK UNK, UNKNOWN FREQ.
     Route: 048
  2. PACLITAXEL. [Concomitant]
     Active Substance: PACLITAXEL
     Indication: BREAST CANCER
     Dosage: UNK UNK, UNKNOWN FREQ.
     Route: 065
     Dates: end: 20200928

REACTIONS (6)
  - Blood potassium increased [Unknown]
  - Jaundice [Unknown]
  - Renal impairment [Unknown]
  - Febrile neutropenia [Unknown]
  - Condition aggravated [Unknown]
  - Breast cancer [Unknown]

NARRATIVE: CASE EVENT DATE: 202010
